FAERS Safety Report 8494879-4 (Version None)
Quarter: 2012Q2

REPORT INFORMATION
  Report Type: 
  Country: None (occurrence: None)
  Receive Date: 20120628
  Receipt Date: 20120614
  Transmission Date: 20120825
  Serious: Yes (Other)
  Sender: FDA-Public Use
  Company Number: 2012P1041605

PATIENT
  Age: 41 Year
  Sex: Female

DRUGS (19)
  1. MULTI-VITAMIN [Concomitant]
  2. TRAMADOL HYDROCHLORIDE AND ACETAMINOPHEN [Concomitant]
  3. DUCOSATE SODIUM [Concomitant]
  4. OMEPRAZOLE [Concomitant]
  5. DAPSONE [Suspect]
     Indication: INFECTION
     Dosage: 100 MG
  6. ACYCLOVIR [Concomitant]
  7. HYDROXYCHLOROQUINE SULFATE [Concomitant]
  8. WARFARIN SODIUM [Suspect]
     Indication: DEEP VEIN THROMBOSIS
     Dosage: 22.5 MG;QW
     Dates: start: 20090701
  9. WARFARIN SODIUM [Suspect]
     Indication: PULMONARY EMBOLISM
     Dosage: 22.5 MG;QW
     Dates: start: 20090701
  10. CLINDAMYCIN [Concomitant]
  11. OXYCODONE/ACETAMINOPHEN [Concomitant]
  12. TROSPIUM XR [Concomitant]
  13. NIFEDIPINE [Concomitant]
  14. SOLIFENACIN SUCCINATE [Concomitant]
  15. CALCIUM-VITAMIN D [Concomitant]
  16. FERROUS SULFATE TAB [Concomitant]
  17. GABAPENTIN [Concomitant]
  18. FOLIC ACID [Concomitant]
  19. PREDNISONE [Concomitant]

REACTIONS (5)
  - DRUG INTERACTION [None]
  - INTERNATIONAL NORMALISED RATIO DECREASED [None]
  - HERPES ZOSTER [None]
  - LOCALISED INFECTION [None]
  - INTERNATIONAL NORMALISED RATIO INCREASED [None]
